FAERS Safety Report 20031498 (Version 8)
Quarter: 2022Q3

REPORT INFORMATION
  Report Type: Report from Study
  Country: CO (occurrence: CO)
  Receive Date: 20211103
  Receipt Date: 20220905
  Transmission Date: 20221026
  Serious: Yes (Other)
  Sender: FDA-Public Use
  Company Number: CO-ABBVIE-21K-036-4139214-00

PATIENT
  Sex: Female

DRUGS (6)
  1. HUMIRA [Suspect]
     Active Substance: ADALIMUMAB
     Indication: Ankylosing spondylitis
     Route: 058
     Dates: start: 20111108
  2. HUMIRA [Suspect]
     Active Substance: ADALIMUMAB
     Indication: Ankylosing spondylitis
     Route: 058
     Dates: end: 20211111
  3. BIOCALCIUM [Concomitant]
     Indication: Blood calcium
     Route: 048
  4. ACETAMINOPHEN\CODEINE PHOSPHATE [Concomitant]
     Active Substance: ACETAMINOPHEN\CODEINE PHOSPHATE
     Indication: Spinal pain
     Dosage: AS NEEDED
     Route: 048
  5. GLUCOSAMINE [Concomitant]
     Active Substance: GLUCOSAMINE
     Indication: Ankylosing spondylitis
     Route: 048
  6. GLUCOSAMINE [Concomitant]
     Active Substance: GLUCOSAMINE
     Indication: Arthropathy

REACTIONS (22)
  - Liver disorder [Not Recovered/Not Resolved]
  - Benign hepatic neoplasm [Not Recovered/Not Resolved]
  - Haemangioma of liver [Recovered/Resolved]
  - Tumour marker increased [Unknown]
  - Tumour marker increased [Not Recovered/Not Resolved]
  - Haemangioma of liver [Not Recovered/Not Resolved]
  - Neoplasm malignant [Not Recovered/Not Resolved]
  - Rhinorrhoea [Recovering/Resolving]
  - Cyst [Recovering/Resolving]
  - Dysphonia [Not Recovered/Not Resolved]
  - Complement factor C3 increased [Unknown]
  - Complement factor C4 increased [Unknown]
  - Immunoglobulins increased [Unknown]
  - Weight decreased [Recovered/Resolved]
  - Gait disturbance [Not Recovered/Not Resolved]
  - Dysstasia [Not Recovered/Not Resolved]
  - Hepatic steatosis [Unknown]
  - Diarrhoea [Not Recovered/Not Resolved]
  - Spinal pain [Not Recovered/Not Resolved]
  - Influenza like illness [Recovering/Resolving]
  - Arthralgia [Not Recovered/Not Resolved]
  - Pain [Not Recovered/Not Resolved]

NARRATIVE: CASE EVENT DATE: 20160101
